FAERS Safety Report 8090319-8 (Version None)
Quarter: 2012Q1

REPORT INFORMATION
  Report Type: 
  Country: None (occurrence: None)
  Receive Date: 20120129
  Receipt Date: 20111111
  Transmission Date: 20120608
  Serious: No
  Sender: FDA-Public Use
  Company Number: US-ABBOTT-11P-163-0873644-00

PATIENT
  Age: 34 Year
  Sex: Female

DRUGS (5)
  1. DAYPRO [Concomitant]
     Indication: PRODUCT USED FOR UNKNOWN INDICATION
  2. ARAVA [Concomitant]
     Indication: PRODUCT USED FOR UNKNOWN INDICATION
  3. ROBAXIN [Concomitant]
     Indication: OSTEOARTHRITIS
  4. HUMIRA [Suspect]
     Indication: RHEUMATOID ARTHRITIS
     Dates: start: 20111101
  5. ROBAXIN [Concomitant]
     Indication: RHEUMATOID ARTHRITIS

REACTIONS (1)
  - NASOPHARYNGITIS [None]
